FAERS Safety Report 24257968 (Version 1)
Quarter: 2024Q3

REPORT INFORMATION
  Report Type: Other
  Country: KR (occurrence: KR)
  Receive Date: 20240828
  Receipt Date: 20240828
  Transmission Date: 20241016
  Serious: Yes (Life-Threatening)
  Sender: B BRAUN
  Company Number: KR-B.Braun Medical Inc.-2160925

PATIENT
  Age: 65 Year
  Sex: Female

DRUGS (4)
  1. MANNITOL [Suspect]
     Active Substance: MANNITOL
     Indication: Brain oedema
  2. DEXAMETHASONE [Suspect]
     Active Substance: DEXAMETHASONE
  3. CEFOTAXIME [Concomitant]
     Active Substance: CEFOTAXIME SODIUM
  4. METRONIDAZOLE [Concomitant]
     Active Substance: METRONIDAZOLE

REACTIONS (1)
  - Drug ineffective [Unknown]
